APPROVED DRUG PRODUCT: LIPOFEN
Active Ingredient: FENOFIBRATE
Strength: 100MG
Dosage Form/Route: CAPSULE;ORAL
Application: N021612 | Product #002
Applicant: CIPHER PHARMACEUTICALS INC
Approved: Jan 11, 2006 | RLD: Yes | RS: No | Type: DISCN